FAERS Safety Report 5525184-3 (Version None)
Quarter: 2007Q4

REPORT INFORMATION
  Report Type: 
  Country: None (occurrence: None)
  Receive Date: 20071119
  Receipt Date: 20071119
  Transmission Date: 20080405
  Serious: Yes (Hospitalization)
  Sender: FDA-Public Use
  Company Number: None

PATIENT
  Age: 85 Year
  Sex: Female
  Weight: 50 kg

DRUGS (1)
  1. METHOTREXATE [Suspect]
     Indication: RHEUMATOID ARTHRITIS
     Dosage: 2.5MG DAILY PO
     Route: 048

REACTIONS (8)
  - ACUTE MYOCARDIAL INFARCTION [None]
  - DYSPHAGIA [None]
  - EPISTAXIS [None]
  - FAILURE TO THRIVE [None]
  - HAEMATOCHEZIA [None]
  - PANCYTOPENIA [None]
  - RECTAL ULCER [None]
  - THERAPEUTIC AGENT TOXICITY [None]
